FAERS Safety Report 6668813-3 (Version None)
Quarter: 2010Q1

REPORT INFORMATION
  Report Type: 
  Country: None (occurrence: None)
  Receive Date: 20100315
  Receipt Date: 20100305
  Transmission Date: 20100710
  Serious: Yes (Hospitalization)
  Sender: FDA-Public Use
  Company Number: 2010022232

PATIENT
  Age: 49 Year
  Sex: Female

DRUGS (1)
  1. PRIVIGEN [Suspect]
     Dosage: 35 G, 35 G, SINGLE DOSE INTRAVENOUS
     Route: 042
     Dates: start: 20100127, end: 20100127

REACTIONS (1)
  - ANGIOEDEMA [None]
